FAERS Safety Report 12503094 (Version 2)
Quarter: 2016Q3

REPORT INFORMATION
  Report Type: Spontaneous
  Country: US (occurrence: US)
  Receive Date: 20160628
  Receipt Date: 20160909
  Transmission Date: 20161109
  Serious: No
  Sender: FDA-Public Use
  Company Number: US-009507513-1606USA002449

PATIENT
  Age: 18 Year
  Sex: Male

DRUGS (3)
  1. CUBICIN [Suspect]
     Active Substance: DAPTOMYCIN
     Indication: SPINAL CORD INFECTION
     Dosage: 8 MG/KG, QD
     Route: 042
     Dates: start: 201601
  2. CUBICIN [Suspect]
     Active Substance: DAPTOMYCIN
     Dosage: 6 MG/KG, QD
     Route: 042
     Dates: start: 20160517, end: 20160602
  3. CUBICIN [Suspect]
     Active Substance: DAPTOMYCIN
     Dosage: 4 MG/KG, QD
     Route: 042
     Dates: start: 20160603

REACTIONS (2)
  - Blood creatine phosphokinase increased [Recovered/Resolved]
  - Blood creatine phosphokinase increased [Unknown]

NARRATIVE: CASE EVENT DATE: 2016
